FAERS Safety Report 5453029-9 (Version None)
Quarter: 2007Q3

REPORT INFORMATION
  Report Type: 
  Country: None (occurrence: None)
  Receive Date: 20070914
  Receipt Date: 20070905
  Transmission Date: 20080115
  Serious: No
  Sender: FDA-Public Use
  Company Number: US-BOEHRINGER INGELHEIM PHARMACEUTICALS, INC.-2007-BP-20586BP

PATIENT
  Age: 10 Year
  Sex: Male

DRUGS (4)
  1. CATAPRES-TTS-1 [Suspect]
     Indication: ATTENTION DEFICIT/HYPERACTIVITY DISORDER
     Route: 061
     Dates: start: 20060901
  2. RISPERIDONE [Concomitant]
  3. SYNTHROID [Concomitant]
  4. FOCALIN [Concomitant]

REACTIONS (1)
  - APPLICATION SITE PRURITUS [None]
